FAERS Safety Report 11619072 (Version 1)
Quarter: 2015Q4

REPORT INFORMATION
  Report Type: Spontaneous
  Country: CA (occurrence: CA)
  Receive Date: 20151012
  Receipt Date: 20151012
  Transmission Date: 20160304
  Serious: Yes (Other)
  Sender: FDA-Public Use
  Company Number: CA-ROCHE-1644330

PATIENT
  Age: 47 Year
  Sex: Female

DRUGS (2)
  1. PREDNISONE. [Concomitant]
     Active Substance: PREDNISONE
  2. XOLAIR [Suspect]
     Active Substance: OMALIZUMAB
     Indication: ASTHMA
     Route: 058
     Dates: start: 20131111

REACTIONS (7)
  - Lower respiratory tract infection [Unknown]
  - Insomnia [Unknown]
  - Dyspnoea [Unknown]
  - Forced expiratory volume decreased [Unknown]
  - Chest discomfort [Unknown]
  - Cough [Unknown]
  - Condition aggravated [Unknown]

NARRATIVE: CASE EVENT DATE: 201410
